FAERS Safety Report 6695349-6 (Version None)
Quarter: 2010Q2

REPORT INFORMATION
  Report Type: 
  Country: None (occurrence: None)
  Receive Date: 20100423
  Receipt Date: 20100423
  Transmission Date: 20101027
  Serious: Yes (Hospitalization)
  Sender: FDA-Public Use
  Company Number: None

PATIENT
  Age: 70 Year
  Sex: Male

DRUGS (7)
  1. IBUPROFEN [Suspect]
     Indication: OEDEMA PERIPHERAL
     Dosage: 400 MG 3 TIMES A DAY PO ; 400 MG ONCE A DAY PO
     Route: 048
     Dates: start: 20100201, end: 20100304
  2. IBUPROFEN [Suspect]
     Indication: PAIN IN EXTREMITY
     Dosage: 400 MG 3 TIMES A DAY PO ; 400 MG ONCE A DAY PO
     Route: 048
     Dates: start: 20100201, end: 20100304
  3. IBUPROFEN [Suspect]
     Indication: OEDEMA PERIPHERAL
     Dosage: 400 MG 3 TIMES A DAY PO ; 400 MG ONCE A DAY PO
     Route: 048
     Dates: start: 20100305, end: 20100308
  4. IBUPROFEN [Suspect]
     Indication: PAIN IN EXTREMITY
     Dosage: 400 MG 3 TIMES A DAY PO ; 400 MG ONCE A DAY PO
     Route: 048
     Dates: start: 20100305, end: 20100308
  5. SIMVASTATAIN [Concomitant]
  6. ASPIRIN [Concomitant]
  7. METAPOLOL [Concomitant]

REACTIONS (2)
  - OEDEMA PERIPHERAL [None]
  - PAIN IN EXTREMITY [None]
